FAERS Safety Report 4424940-2 (Version None)
Quarter: 2004Q3

REPORT INFORMATION
  Report Type: 
  Country: None (occurrence: None)
  Receive Date: 20040719
  Receipt Date: 20040409
  Transmission Date: 20050211
  Serious: Yes (Hospitalization, Other)
  Sender: FDA-Public Use
  Company Number: 195851

PATIENT
  Age: 42 Year
  Sex: Female
  Weight: 79.3795 kg

DRUGS (3)
  1. AVONEX [Suspect]
     Indication: MULTIPLE SCLEROSIS
     Dosage: 30 MCG QW IM
     Route: 030
     Dates: start: 20010101, end: 20030801
  2. AVONEX [Suspect]
     Indication: MULTIPLE SCLEROSIS
     Dosage: 30 MCG QW IM
     Route: 030
     Dates: start: 20030801
  3. INSULIN [Concomitant]

REACTIONS (9)
  - ABORTION SPONTANEOUS [None]
  - ASTHENIA [None]
  - BLOOD GLUCOSE INCREASED [None]
  - FAECAL INCONTINENCE [None]
  - FALL [None]
  - MOOD ALTERED [None]
  - OSTEOPOROSIS [None]
  - URINARY INCONTINENCE [None]
  - VISUAL DISTURBANCE [None]
